FAERS Safety Report 19912796 (Version 1)
Quarter: 2021Q4

REPORT INFORMATION
  Report Type: Spontaneous
  Country: US (occurrence: US)
  Receive Date: 20211004
  Receipt Date: 20211004
  Transmission Date: 20220303
  Serious: Yes (Other)
  Sender: FDA-Public Use
  Company Number: None

PATIENT
  Age: 57 Year
  Sex: Female
  Weight: 67.5 kg

DRUGS (23)
  1. REGEN-COV [Suspect]
     Active Substance: CASIRIVIMAB\IMDEVIMAB
     Indication: COVID-19
     Dosage: ?          QUANTITY:4 INJECTION(S);OTHER FREQUENCY:CONSECUTIVELY;
     Route: 058
     Dates: start: 20210909, end: 20210909
  2. EXEMESTANE [Concomitant]
     Active Substance: EXEMESTANE
  3. METOPROLOL SUCCINATE [Concomitant]
     Active Substance: METOPROLOL SUCCINATE
  4. NAPROXEN [Concomitant]
     Active Substance: NAPROXEN
  5. CLORAZEPATE DIPOTASSIUM [Concomitant]
     Active Substance: CLORAZEPATE DIPOTASSIUM
  6. VITAMINS B-COMPLEX [Concomitant]
  7. C [Concomitant]
  8. VITAMIN D3 [Concomitant]
     Active Substance: CHOLECALCIFEROL
  9. E [Concomitant]
  10. JWH-018 [Concomitant]
     Active Substance: JWH-018
  11. APPLE CIDER VINEGAR [Concomitant]
     Active Substance: APPLE CIDER VINEGAR
  12. BIOTIN [Concomitant]
     Active Substance: BIOTIN
  13. BLACK GARLIC [Concomitant]
  14. CALCIUM CITRATE [Concomitant]
     Active Substance: CALCIUM CITRATE
  15. FISH OIL [Concomitant]
     Active Substance: FISH OIL
  16. GLUCOSAMINE [Concomitant]
     Active Substance: GLUCOSAMINE
  17. CHONDROITIN [Concomitant]
     Active Substance: CHONDROITIN
  18. MELATONIN [Concomitant]
     Active Substance: MELATONIN
  19. MULTI-VITAMINS [Concomitant]
  20. NAC [Concomitant]
  21. PROBIOTICS NOS [Concomitant]
     Active Substance: PROBIOTICS NOS
  22. HERBALS\TURMERIC [Concomitant]
     Active Substance: HERBALS\TURMERIC
  23. ZINC [Concomitant]
     Active Substance: ZINC

REACTIONS (3)
  - Rash [None]
  - Erythema [None]
  - Injection site swelling [None]

NARRATIVE: CASE EVENT DATE: 20210919
